FAERS Safety Report 5581746-9 (Version None)
Quarter: 2008Q1

REPORT INFORMATION
  Report Type: 
  Country: None (occurrence: None)
  Receive Date: 20080104
  Receipt Date: 20070406
  Transmission Date: 20080703
  Serious: Yes (Other)
  Sender: FDA-Public Use
  Company Number: US-ASTRAZENECA-2007UW25287

PATIENT
  Age: 18316 Day
  Sex: Female
  Weight: 106.4 kg

DRUGS (4)
  1. SEROQUEL [Suspect]
     Indication: BIPOLAR DISORDER
     Dosage: 600-1200 MG
     Route: 048
     Dates: start: 20030816, end: 20060201
  2. RISPERDAL [Concomitant]
     Dates: start: 19990501
  3. LITHIUM [Concomitant]
     Dates: start: 20040101, end: 20050101
  4. DEPAKOTE [Concomitant]
     Dates: start: 19990101

REACTIONS (5)
  - ABDOMINAL PAIN [None]
  - CATHETERISATION CARDIAC [None]
  - DIABETIC KETOACIDOSIS [None]
  - STENT PLACEMENT [None]
  - TYPE 1 DIABETES MELLITUS [None]
